FAERS Safety Report 5849282-X (Version None)
Quarter: 2008Q3

REPORT INFORMATION
  Report Type: 
  Country: None (occurrence: None)
  Receive Date: 20080815
  Receipt Date: 20080731
  Transmission Date: 20090109
  Serious: Yes (Other)
  Sender: FDA-Public Use
  Company Number: 2008S1000223

PATIENT
  Age: 53 Year
  Sex: Male

DRUGS (3)
  1. ACITRETIN [Suspect]
     Indication: PSORIASIS
     Dosage: 10 MG; QD; PO, 25 MG; QD; PO
     Route: 048
  2. ANTIPSORIATIC FOR TOPICAL USE [Concomitant]
  3. AMLODIPINE [Concomitant]

REACTIONS (3)
  - CHRONIC OBSTRUCTIVE PULMONARY DISEASE [None]
  - CONDITION AGGRAVATED [None]
  - ERYTHRODERMIC PSORIASIS [None]
